APPROVED DRUG PRODUCT: LEVETIRACETAM IN SODIUM CHLORIDE
Active Ingredient: LEVETIRACETAM
Strength: 500MG/100ML (5MG/ML)
Dosage Form/Route: INJECTABLE;INTRAVENOUS
Application: N202543 | Product #001 | TE Code: AP
Applicant: HQ SPECIALTY PHARMA CORP
Approved: Nov 9, 2011 | RLD: Yes | RS: Yes | Type: RX